FAERS Safety Report 9536763 (Version 2)
Quarter: 2013Q4

REPORT INFORMATION
  Report Type: Spontaneous
  Country: US (occurrence: US)
  Receive Date: 20130919
  Receipt Date: 20131030
  Transmission Date: 20140711
  Serious: Yes (Death)
  Sender: FDA-Public Use
  Company Number: US-AMGEN-USASP2013064676

PATIENT
  Age: 77 Year
  Sex: Female
  Weight: 39 kg

DRUGS (7)
  1. XGEVA [Suspect]
     Indication: METASTASES TO SPINE
     Dosage: 120 MG, QMO
     Route: 058
     Dates: start: 20121010, end: 20130515
  2. VICODIN [Concomitant]
     Dosage: 1.5/325 UNK, Q4HRS AS NECESSARY
     Route: 048
     Dates: start: 20130515, end: 20130610
  3. ASPIRIN [Concomitant]
     Dosage: 325 MG, QD
     Route: 048
     Dates: start: 20120111, end: 20130515
  4. PRAVASTATIN [Concomitant]
     Dosage: 30 MG, QHS
     Route: 048
     Dates: start: 20120111, end: 20130515
  5. FENTANYL [Concomitant]
     Dosage: 50 MUG, Q72HRS
     Route: 061
     Dates: start: 20130705, end: 20130813
  6. MORPHINE [Concomitant]
     Dosage: 30 MG, Q3H PRN
     Route: 048
     Dates: start: 20130731, end: 20130813
  7. ROXANOL [Concomitant]
     Dosage: 5-10MG,Q2HRS AS NECESSARY
     Route: 058
     Dates: start: 20130610

REACTIONS (1)
  - Metastatic carcinoma of the bladder [Fatal]
